FAERS Safety Report 15796343 (Version 2)
Quarter: 2019Q1

REPORT INFORMATION
  Report Type: Spontaneous
  Country: DE (occurrence: DE)
  Receive Date: 20190108
  Receipt Date: 20190308
  Transmission Date: 20190417
  Serious: Yes (Death)
  Sender: FDA-Public Use
  Company Number: DE-BIOGEN-2019BI00679640

PATIENT
  Sex: Male

DRUGS (1)
  1. TYSABRI [Suspect]
     Active Substance: NATALIZUMAB
     Indication: MULTIPLE SCLEROSIS
     Route: 050
     Dates: start: 20090527, end: 20110322

REACTIONS (6)
  - Sepsis [Fatal]
  - Candida infection [Fatal]
  - Endocarditis [Fatal]
  - Staphylococcal infection [Fatal]
  - Septic embolus [Fatal]
  - Respiratory failure [Fatal]
